FAERS Safety Report 8773746 (Version 2)
Quarter: 2012Q4

REPORT INFORMATION
  Report Type: 
  Country: US (occurrence: US)
  Receive Date: 20120907
  Receipt Date: 20121017
  Transmission Date: 20130627
  Serious: Yes (Other)
  Sender: FDA-Public Use
  Company Number: US-PFIZER INC-2012220019

PATIENT
  Age: 53 Year
  Sex: Female
  Weight: 81.63 kg

DRUGS (4)
  1. LYRICA [Suspect]
     Indication: MUSCLE TWITCHING
     Dosage: 50 mg, 2x/day
     Route: 048
     Dates: start: 201203
  2. DULERA [Suspect]
     Indication: CHRONIC OBSTRUCTIVE PULMONARY DISEASE
     Dosage: two puffs of unknown dose, 3x/day
  3. DULERA [Suspect]
     Indication: BRONCHITIS CHRONIC
  4. ACETAMINOPHEN W/OXYCODONE [Concomitant]
     Indication: ARTHRITIS
     Dosage: 5/325, mg, 2x/day

REACTIONS (5)
  - Visual acuity reduced [Not Recovered/Not Resolved]
  - Chronic obstructive pulmonary disease [Not Recovered/Not Resolved]
  - Fluid retention [Not Recovered/Not Resolved]
  - Weight increased [Unknown]
  - Hypertension [Unknown]
